FAERS Safety Report 9687521 (Version 2)
Quarter: 2019Q1

REPORT INFORMATION
  Report Type: Spontaneous
  Country: FR (occurrence: FR)
  Receive Date: 20131114
  Receipt Date: 20190315
  Transmission Date: 20190418
  Serious: Yes (Hospitalization, Other)
  Sender: FDA-Public Use
  Company Number: US-ASTRAZENECA-2013SE83381

PATIENT
  Age: 73 Year
  Sex: Female

DRUGS (12)
  1. CHIBRO-CADRON [Concomitant]
     Active Substance: DEXAMETHASONE\NEOMYCIN SULFATE
  2. FUROSEMIDE. [Concomitant]
     Active Substance: FUROSEMIDE
  3. PLAVIX [Concomitant]
     Active Substance: CLOPIDOGREL BISULFATE
  4. DIAMICRON [Concomitant]
     Active Substance: GLICLAZIDE
  5. KENZEN [Suspect]
     Active Substance: CANDESARTAN
     Indication: PRODUCT USED FOR UNKNOWN INDICATION
     Dosage: UNK
     Route: 048
     Dates: start: 201203
  6. GALVUS [Concomitant]
     Active Substance: VILDAGLIPTIN
  7. TAHOR [Concomitant]
     Active Substance: ATORVASTATIN CALCIUM
  8. COVERSYL /00790702/ [Concomitant]
     Active Substance: PERINDOPRIL
  9. TEMERIT [Suspect]
     Active Substance: NEBIVOLOL
     Dosage: 5.0MG UNKNOWN
     Route: 065
     Dates: start: 201302
  10. KARDEGIC [Concomitant]
     Active Substance: ASPIRIN DL-LYSINE
  11. ALPHAGAN P [Concomitant]
     Active Substance: BRIMONIDINE TARTRATE
  12. DEXAFREE [Concomitant]
     Active Substance: DEXAMETHASONE SODIUM PHOSPHATE

REACTIONS (3)
  - Rash erythematous [Unknown]
  - Exfoliative rash [Unknown]
  - Cutaneous lupus erythematosus [Not Recovered/Not Resolved]

NARRATIVE: CASE EVENT DATE: 201307
